FAERS Safety Report 22157074 (Version 1)
Quarter: 2023Q1

REPORT INFORMATION
  Report Type: Spontaneous
  Country: CN (occurrence: CN)
  Receive Date: 20230330
  Receipt Date: 20230330
  Transmission Date: 20230417
  Serious: Yes (Other)
  Sender: FDA-Public Use
  Company Number: CN-BAYER-2023A037627

PATIENT
  Age: 39 Year
  Sex: Male

DRUGS (2)
  1. NEXAVAR [Suspect]
     Active Substance: SORAFENIB
     Indication: Hepatocellular carcinoma
     Dosage: 400 MG, QD
     Route: 048
     Dates: start: 20200805, end: 202109
  2. STIVARGA [Suspect]
     Active Substance: REGORAFENIB
     Indication: Hepatic cancer recurrent
     Dosage: 80 MG, QD
     Route: 048
     Dates: start: 202110

REACTIONS (4)
  - Hepatic cancer recurrent [Recovered/Resolved]
  - Abdominal adhesions [None]
  - Off label use [None]
  - Off label use [None]

NARRATIVE: CASE EVENT DATE: 20200805
